APPROVED DRUG PRODUCT: SUMATRIPTAN SUCCINATE
Active Ingredient: SUMATRIPTAN SUCCINATE
Strength: EQ 25MG BASE
Dosage Form/Route: TABLET;ORAL
Application: A078295 | Product #001
Applicant: SUN PHARMACEUTICAL INDUSTRIES LTD
Approved: Aug 10, 2009 | RLD: No | RS: No | Type: DISCN